FAERS Safety Report 15596649 (Version 2)
Quarter: 2018Q4

REPORT INFORMATION
  Report Type: Spontaneous
  Country: IL (occurrence: IL)
  Receive Date: 20181108
  Receipt Date: 20181112
  Transmission Date: 20190205
  Serious: Yes (Other)
  Sender: FDA-Public Use
  Company Number: IL-TEVA-2018-IL-972940

PATIENT
  Sex: Female

DRUGS (1)
  1. RESPRIM [Suspect]
     Active Substance: SULFAMETHOXAZOLE\TRIMETHOPRIM
     Dosage: 1 DOSAGE FORM = 800/1600
     Route: 065

REACTIONS (4)
  - Rash pustular [Unknown]
  - Lymphadenopathy [Unknown]
  - Generalised erythema [Unknown]
  - Drug reaction with eosinophilia and systemic symptoms [Unknown]
